FAERS Safety Report 25749343 (Version 1)
Quarter: 2025Q3

REPORT INFORMATION
  Report Type: Report from Study
  Country: ID (occurrence: ID)
  Receive Date: 20250902
  Receipt Date: 20250902
  Transmission Date: 20251021
  Serious: Yes (Death, Other)
  Sender: TAKEDA
  Company Number: ID-TAKEDA-2024TUS111267

PATIENT
  Age: 52 Year
  Sex: Female

DRUGS (1)
  1. BRIGATINIB [Suspect]
     Active Substance: BRIGATINIB
     Indication: Non-small cell lung cancer metastatic
     Dosage: 180 MILLIGRAM, QD
     Dates: start: 20240606

REACTIONS (3)
  - Death [Fatal]
  - Product prescribing issue [Unknown]
  - Product dose omission issue [Unknown]

NARRATIVE: CASE EVENT DATE: 20250827
